FAERS Safety Report 10192126 (Version 1)
Quarter: 2014Q2

REPORT INFORMATION
  Report Type: Spontaneous
  Country: GR (occurrence: GR)
  Receive Date: 20140523
  Receipt Date: 20140523
  Transmission Date: 20141212
  Serious: Yes (Hospitalization)
  Sender: FDA-Public Use
  Company Number: GR-JNJFOC-20140507892

PATIENT
  Age: 36 Year
  Sex: Female

DRUGS (1)
  1. TOPIRAMATE [Suspect]
     Indication: MIGRAINE
     Route: 048

REACTIONS (3)
  - Angle closure glaucoma [Recovering/Resolving]
  - Choroidal effusion [Recovering/Resolving]
  - Iridocyclitis [Recovering/Resolving]
